FAERS Safety Report 25285104 (Version 2)
Quarter: 2025Q3

REPORT INFORMATION
  Report Type: Report from Study
  Country: IN (occurrence: IN)
  Receive Date: 20250509
  Receipt Date: 20250803
  Transmission Date: 20251021
  Serious: Yes (Death)
  Sender: ALEXION PHARMACEUTICALS
  Company Number: IN-AstraZeneca-CH-00864548A

PATIENT
  Age: 73 Year
  Sex: Female
  Weight: 72 kg

DRUGS (1)
  1. OLAPARIB [Suspect]
     Active Substance: OLAPARIB
     Indication: Prophylaxis
     Dosage: 300 MILLIGRAM, BID

REACTIONS (1)
  - Death [Fatal]

NARRATIVE: CASE EVENT DATE: 20250410
